FAERS Safety Report 13199371 (Version 1)
Quarter: 2017Q1

REPORT INFORMATION
  Report Type: Spontaneous
  Country: GB (occurrence: GB)
  Receive Date: 20170208
  Receipt Date: 20170208
  Transmission Date: 20170428
  Serious: Yes (Hospitalization)
  Sender: FDA-Public Use
  Company Number: GB-TEVA-737341ISR

PATIENT
  Age: 55 Year
  Sex: Female

DRUGS (1)
  1. WARFARIN [Suspect]
     Active Substance: WARFARIN
     Indication: DEEP VEIN THROMBOSIS
     Dosage: DOSE: ALTERNATING 8 MG AND 9 MG (HIGH DOSE)
     Route: 065

REACTIONS (3)
  - Compartment syndrome [Recovered/Resolved]
  - Muscle contractions involuntary [Unknown]
  - Haematoma [Recovered/Resolved]
